FAERS Safety Report 22619013 (Version 1)
Quarter: 2023Q2

REPORT INFORMATION
  Report Type: Spontaneous
  Country: IT (occurrence: IT)
  Receive Date: 20230620
  Receipt Date: 20230620
  Transmission Date: 20230721
  Serious: Yes (Hospitalization, Other)
  Sender: FDA-Public Use
  Company Number: None

PATIENT
  Age: 68 Year
  Sex: Female
  Weight: 66 kg

DRUGS (1)
  1. DOPTELET [Suspect]
     Active Substance: AVATROMBOPAG MALEATE
     Indication: Immune thrombocytopenia
     Dosage: FROM 29-MAR-2023, AVATROMBOPAG 20 MG DAILY REDUCED FOR EXCESS RESPONSE TO 20 MG 3 TIMES A WEEK.
     Route: 048
     Dates: start: 20230329, end: 20230511

REACTIONS (1)
  - Visceral venous thrombosis [Recovered/Resolved with Sequelae]

NARRATIVE: CASE EVENT DATE: 20230511
